FAERS Safety Report 21318249 (Version 1)
Quarter: 2022Q3

REPORT INFORMATION
  Report Type: Spontaneous
  Country: US (occurrence: US)
  Receive Date: 20220911
  Receipt Date: 20220911
  Transmission Date: 20221026
  Serious: No
  Sender: FDA-Public Use
  Company Number: US-SA-SAC20220825000173

PATIENT
  Age: 64 Year
  Sex: Female
  Weight: 165 kg

DRUGS (25)
  1. TOUJEO [Suspect]
     Active Substance: INSULIN GLARGINE
     Indication: Product used for unknown indication
     Route: 065
  2. MIFEPRISTONE [Suspect]
     Active Substance: MIFEPRISTONE
     Indication: Cushing^s syndrome
     Dosage: 300 MG, QD
     Route: 048
     Dates: start: 20220728
  3. ACTOS [Concomitant]
     Active Substance: PIOGLITAZONE HYDROCHLORIDE
  4. ALPRAZOLAM [Concomitant]
     Active Substance: ALPRAZOLAM
  5. AMLODIPINE [Concomitant]
     Active Substance: AMLODIPINE BESYLATE
  6. ARIPIPRAZOLE [Concomitant]
     Active Substance: ARIPIPRAZOLE
  7. BISOPROLOL FUMARATE\HYDROCHLOROTHIAZIDE [Concomitant]
     Active Substance: BISOPROLOL FUMARATE\HYDROCHLOROTHIAZIDE
  8. CELECOXIB [Concomitant]
     Active Substance: CELECOXIB
  9. CLONIDINE [Concomitant]
     Active Substance: CLONIDINE
  10. CYCLOBENZAPRINE [Concomitant]
     Active Substance: CYCLOBENZAPRINE
  11. DICLOFENAC [Concomitant]
     Active Substance: DICLOFENAC
  12. DULOXETINE [Concomitant]
     Active Substance: DULOXETINE
  13. FAMOTIDINE [Concomitant]
     Active Substance: FAMOTIDINE
  14. GABAPENTIN [Concomitant]
     Active Substance: GABAPENTIN
  15. HYDROCHLOROTHIAZIDE [Concomitant]
     Active Substance: HYDROCHLOROTHIAZIDE
  16. JARDIANCE [Concomitant]
     Active Substance: EMPAGLIFLOZIN
  17. LIDOCAINE [Concomitant]
     Active Substance: LIDOCAINE
  18. LOSARTAN [Concomitant]
     Active Substance: LOSARTAN
  19. METFORMIN [Concomitant]
     Active Substance: METFORMIN HYDROCHLORIDE
  20. PLAVIX [Concomitant]
     Active Substance: CLOPIDOGREL BISULFATE
  21. ROPINIROLE [Concomitant]
     Active Substance: ROPINIROLE
  22. ROSUVASTATIN [Concomitant]
     Active Substance: ROSUVASTATIN
  23. SILVER SULFADIAZINE [Concomitant]
     Active Substance: SILVER SULFADIAZINE
  24. TRAZODONE [Concomitant]
     Active Substance: TRAZODONE HYDROCHLORIDE
  25. HYDROCODONE [Concomitant]
     Active Substance: HYDROCODONE

REACTIONS (8)
  - Mucous stools [Unknown]
  - Arthralgia [Unknown]
  - Nausea [Unknown]
  - Blood potassium decreased [Unknown]
  - Vomiting [Unknown]
  - Diarrhoea [Unknown]
  - Panic attack [Unknown]
  - Blood glucose decreased [Unknown]
